FAERS Safety Report 5228947-7 (Version None)
Quarter: 2007Q1

REPORT INFORMATION
  Report Type: 
  Country: None (occurrence: None)
  Receive Date: 20061201
  Receipt Date: 20061004
  Transmission Date: 20070707
  Serious: No
  Sender: FDA-Public Use
  Company Number: US200610000937

PATIENT
  Sex: Female

DRUGS (8)
  1. CYMBALTA [Suspect]
     Indication: DEPRESSION
     Dosage: SEE IMAGE
     Route: 048
     Dates: start: 20060601, end: 20060101
  2. CYMBALTA [Suspect]
     Indication: DEPRESSION
     Dosage: SEE IMAGE
     Route: 048
     Dates: start: 20060101
  3. HYZAAR (HYDROCHLORIDE, LOSARTAN POTASSIUM) [Concomitant]
  4. MOBIC [Concomitant]
  5. WELLBUTRIN [Concomitant]
  6. NEURONTIN [Concomitant]
  7. ALLEGRA [Concomitant]
  8. BENADRYL 'WARNER-LAMBERT^/USA/(DIPHENHDRAMINE HYDROCHLORIDE) [Concomitant]

REACTIONS (5)
  - DIZZINESS [None]
  - EMOTIONAL DISORDER [None]
  - IRRITABILITY [None]
  - MEMORY IMPAIRMENT [None]
  - MOOD SWINGS [None]
